FAERS Safety Report 24400556 (Version 2)
Quarter: 2024Q4

REPORT INFORMATION
  Report Type: Spontaneous
  Country: US (occurrence: US)
  Receive Date: 20241005
  Receipt Date: 20241216
  Transmission Date: 20250115
  Serious: No
  Sender: SANOFI AVENTIS
  Company Number: US-SA-2024SA280725

PATIENT
  Sex: Male
  Weight: 90.71 kg

DRUGS (48)
  1. DUPIXENT [Suspect]
     Active Substance: DUPILUMAB
     Indication: Asthma
     Dosage: 300 MG, QOW
     Route: 058
  2. DUPIXENT [Suspect]
     Active Substance: DUPILUMAB
     Indication: Chronic obstructive pulmonary disease
  3. OFEV [Suspect]
     Active Substance: NINTEDANIB
     Dosage: UNK
     Route: 065
  4. LOPRESSOR [Concomitant]
     Active Substance: METOPROLOL TARTRATE
  5. TOBRAMYCIN [Concomitant]
     Active Substance: TOBRAMYCIN\TOBRAMYCIN SULFATE
  6. TYLENOL [Concomitant]
     Active Substance: ACETAMINOPHEN
  7. VITAMINS [Concomitant]
     Active Substance: VITAMINS
  8. ALBUTEROL SULFATE [Concomitant]
     Active Substance: ALBUTEROL SULFATE
  9. LEXAPRO [Concomitant]
     Active Substance: ESCITALOPRAM OXALATE
  10. HYDROCHLOROTHIAZIDE [Concomitant]
     Active Substance: HYDROCHLOROTHIAZIDE
  11. CRESTOR [Concomitant]
     Active Substance: ROSUVASTATIN CALCIUM
  12. FLUTICASONE [Concomitant]
     Active Substance: FLUTICASONE
  13. NEURONTIN [Concomitant]
     Active Substance: GABAPENTIN
  14. ZITHROMAX [Concomitant]
     Active Substance: AZITHROMYCIN DIHYDRATE
  15. TESSALON [Concomitant]
     Active Substance: BENZONATATE
  16. SODIUM CHLORIDE [Concomitant]
     Active Substance: SODIUM CHLORIDE
  17. FLOVENT HFA [Concomitant]
     Active Substance: FLUTICASONE PROPIONATE
  18. BENZONATATE [Concomitant]
     Active Substance: BENZONATATE
  19. NITROGLYCERIN [Concomitant]
     Active Substance: NITROGLYCERIN
  20. STIOLTO RESPIMAT [Concomitant]
     Active Substance: OLODATEROL HYDROCHLORIDE\TIOTROPIUM BROMIDE MONOHYDRATE
  21. AMLODIPINE BESYLATE [Concomitant]
     Active Substance: AMLODIPINE BESYLATE
  22. SODIUM BICARBONATE [Concomitant]
     Active Substance: SODIUM BICARBONATE
  23. HORIZANT [Concomitant]
     Active Substance: GABAPENTIN ENACARBIL
  24. AZITHROMYCIN [Concomitant]
     Active Substance: AZITHROMYCIN
  25. GABAPENTIN [Concomitant]
     Active Substance: GABAPENTIN
  26. TRICOR [Concomitant]
     Active Substance: FENOFIBRATE
  27. GABAPENTIN [Concomitant]
     Active Substance: GABAPENTIN
  28. MEMANTINE [Concomitant]
     Active Substance: MEMANTINE
  29. ROSUVASTATIN CALCIUM [Concomitant]
     Active Substance: ROSUVASTATIN CALCIUM
  30. LEVOTHYROXINE SODIUM [Concomitant]
     Active Substance: LEVOTHYROXINE SODIUM
  31. RABEPRAZOLE SODIUM [Concomitant]
     Active Substance: RABEPRAZOLE SODIUM
  32. CARVEDILOL [Concomitant]
     Active Substance: CARVEDILOL
  33. DALIRESP [Concomitant]
     Active Substance: ROFLUMILAST
     Indication: Asthma
  34. CLOTRIMAZOLE [Concomitant]
     Active Substance: CLOTRIMAZOLE
  35. PULMICORT TURBUHALER [Concomitant]
     Active Substance: BUDESONIDE
  36. Goodsense cold relief zinc [Concomitant]
  37. DILTIAZEM [Concomitant]
     Active Substance: DILTIAZEM
     Dosage: UNK
  38. VITAMIN B12 [Concomitant]
     Active Substance: CYANOCOBALAMIN
     Dosage: UNK
  39. EZETIMIBE [Concomitant]
     Active Substance: EZETIMIBE
  40. FENOFIBRATE [Concomitant]
     Active Substance: FENOFIBRATE
  41. LEXISCAN [Concomitant]
     Active Substance: REGADENOSON
  42. FLUTICASONE PROPIONATE HFA [Concomitant]
     Active Substance: FLUTICASONE PROPIONATE
  43. VITAMIN D3 [Concomitant]
     Active Substance: CHOLECALCIFEROL
     Dosage: UNK
  44. OXYGEN [Concomitant]
     Active Substance: OXYGEN
     Dosage: UNK
  45. TESSALON [Concomitant]
     Active Substance: BENZONATATE
     Dosage: UNK
  46. FUROSEMIDE [Concomitant]
     Active Substance: FUROSEMIDE
  47. NYSTATIN [Concomitant]
     Active Substance: NYSTATIN
     Dosage: UNK
  48. STIOLTO RESPIMAT [Concomitant]
     Active Substance: OLODATEROL HYDROCHLORIDE\TIOTROPIUM BROMIDE MONOHYDRATE
     Dosage: UNK

REACTIONS (4)
  - Chronic obstructive pulmonary disease [Not Recovered/Not Resolved]
  - Sleep disorder due to a general medical condition [Not Recovered/Not Resolved]
  - Mobility decreased [Not Recovered/Not Resolved]
  - Diarrhoea [Unknown]
